FAERS Safety Report 7133925-7 (Version None)
Quarter: 2010Q4

REPORT INFORMATION
  Report Type: 
  Country: None (occurrence: None)
  Receive Date: 20101203
  Receipt Date: 20101108
  Transmission Date: 20110411
  Serious: Yes (Hospitalization, Other)
  Sender: FDA-Public Use
  Company Number: US-BAYER-200943151NA

PATIENT

DRUGS (14)
  1. YAZ [Suspect]
     Dates: start: 20070101, end: 20080101
  2. YAZ [Suspect]
  3. YASMIN [Suspect]
     Indication: CONTRACEPTION
     Dates: start: 20000101, end: 20060101
  4. YASMIN [Suspect]
  5. OCELLA [Suspect]
     Dates: start: 20040101, end: 20080301
  6. IBUPROFEN [Concomitant]
     Dosage: 200 MG (DAILY DOSE), PRN, ORAL
     Route: 048
     Dates: end: 20080201
  7. ALEVE (CAPLET) [Concomitant]
     Indication: HEADACHE
     Route: 048
     Dates: end: 20080201
  8. HYDROCODONE [Concomitant]
     Indication: MIGRAINE
     Route: 048
     Dates: start: 20031001
  9. SUDAFED S.A. [Concomitant]
     Indication: MULTIPLE ALLERGIES
     Route: 048
     Dates: end: 20080201
  10. BENADRYL [Concomitant]
     Indication: MULTIPLE ALLERGIES
     Dosage: 25 MG (DAILY DOSE), PRN, ORAL
     Route: 048
     Dates: end: 20080201
  11. UNCODEABLE ^UNCLASSIFIABLE^ [Concomitant]
     Indication: HEADACHE
     Route: 048
     Dates: end: 20080201
  12. UNCODEABLE ^UNCLASSIFIABLE^ [Concomitant]
  13. LEXAPRO [Concomitant]
     Indication: DEPRESSION
     Dosage: 20 MG (DAILY DOSE), QD, ORAL
     Route: 048
  14. XANAX [Concomitant]
     Indication: ANXIETY
     Route: 048

REACTIONS (3)
  - ATELECTASIS [None]
  - PULMONARY EMBOLISM [None]
  - PULMONARY INFARCTION [None]
